FAERS Safety Report 15673224 (Version 1)
Quarter: 2018Q4

REPORT INFORMATION
  Report Type: Spontaneous
  Country: US (occurrence: US)
  Receive Date: 20181129
  Receipt Date: 20181129
  Transmission Date: 20190205
  Serious: No
  Sender: FDA-Public Use
  Company Number: US-PFIZER INC-2018478248

PATIENT
  Age: 60 Year
  Sex: Female
  Weight: 68.4 kg

DRUGS (1)
  1. VENLAFAXINE HCL [Suspect]
     Active Substance: VENLAFAXINE HYDROCHLORIDE
     Indication: DEPRESSION
     Dosage: 75 MG, THREE TIMES A DAY
     Route: 048
     Dates: start: 2018

REACTIONS (1)
  - Drug ineffective [Not Recovered/Not Resolved]
